FAERS Safety Report 4302266-5 (Version None)
Quarter: 2004Q1

REPORT INFORMATION
  Report Type: 
  Country: None (occurrence: None)
  Receive Date: 20040220
  Receipt Date: 20040206
  Transmission Date: 20041129
  Serious: Yes (Death, Life-Threatening, Other)
  Sender: FDA-Public Use
  Company Number: 2004008478

PATIENT
  Age: 67 Year
  Sex: Male
  Weight: 109 kg

DRUGS (28)
  1. SORTIS (ATORVASTATIN) [Suspect]
     Indication: HYPERLIPIDAEMIA
     Dosage: 10 MG (DAILY), ORAL
     Route: 048
  2. PROPOFOL [Suspect]
     Indication: STUPOR
  3. AMIODARONE HCL [Suspect]
     Indication: ILL-DEFINED DISORDER
  4. VERAPAMIL [Suspect]
     Indication: ILL-DEFINED DISORDER
  5. LOSARTAN (LOSARTAN) [Suspect]
     Indication: ILL-DEFINED DISORDER
  6. FLUNITRAZEPAM (FLUNITRAZEPAM) [Suspect]
     Indication: ILL-DEFINED DISORDER
  7. SUFENTANIL CITRATE [Concomitant]
  8. LIDOCAINE [Concomitant]
  9. SIMVASTATIN [Concomitant]
  10. OMEPRAZOLE [Concomitant]
  11. PIRITRAMIDE (PIRITRAMIDE) [Concomitant]
  12. ETOMIDATE (ETOMIDATE) [Concomitant]
  13. PANCURONIUM BROMIDE [Concomitant]
  14. CEFOTIAM (CEFOTIAM) [Concomitant]
  15. ALLOPURINOL [Concomitant]
  16. XIPAMIDE (XIPAMIDE) [Concomitant]
  17. AMLODIPINE [Concomitant]
  18. ALL OTHER THERAPEUTIC PRODUCTS [Concomitant]
  19. GLYBURIDE [Concomitant]
  20. PIPERACILLIN/TAZOBACTAM (PIPERACILLIN, TAZOBACTAM) [Concomitant]
  21. ACETYLSALICYLIC ACID SRT [Concomitant]
  22. CLOPIDOGREL BISULFATE [Concomitant]
  23. FUROSEMIDE [Concomitant]
  24. METHYLPREDNISOLONE [Concomitant]
  25. DOPAMINE HCL [Concomitant]
  26. DOBUTAMINE (DOBUTAMINE) [Concomitant]
  27. EPINEPHRINE [Concomitant]
  28. NOREPINEPHRINE (NOREPINEPHRINE) [Concomitant]

REACTIONS (7)
  - ANAPHYLACTIC SHOCK [None]
  - DRUG INTERACTION [None]
  - HAEMODIALYSIS [None]
  - HEPATIC FAILURE [None]
  - RENAL FAILURE ACUTE [None]
  - RESPIRATORY FAILURE [None]
  - RHABDOMYOLYSIS [None]
